FAERS Safety Report 4842838-2 (Version None)
Quarter: 2005Q4

REPORT INFORMATION
  Report Type: 
  Country: None (occurrence: None)
  Receive Date: 20051129
  Receipt Date: 20051117
  Transmission Date: 20060501
  Serious: Yes (Hospitalization)
  Sender: FDA-Public Use
  Company Number: IT-2005-024287

PATIENT
  Age: 65 Year
  Sex: Male

DRUGS (1)
  1. ULTRAVIST 150 [Suspect]
     Indication: DIAGNOSTIC PROCEDURE
     Dosage: 120 ML, 1 DOSE, IV DRIP
     Route: 041
     Dates: start: 20051110, end: 20051110

REACTIONS (4)
  - CARDIO-RESPIRATORY ARREST [None]
  - CIRCULATORY COLLAPSE [None]
  - COUGH [None]
  - CYANOSIS [None]
